FAERS Safety Report 15663340 (Version 1)
Quarter: 2018Q4

REPORT INFORMATION
  Report Type: Report from Study
  Country: VN (occurrence: VN)
  Receive Date: 20181128
  Receipt Date: 20181128
  Transmission Date: 20190205
  Serious: Yes (Other)
  Sender: FDA-Public Use
  Company Number: VN-ROCHE-2218711

PATIENT

DRUGS (2)
  1. MYCOPHENOLATE MOFETIL. [Suspect]
     Active Substance: MYCOPHENOLATE MOFETIL
     Indication: PROPHYLAXIS AGAINST TRANSPLANT REJECTION
     Route: 065
  2. TACROLIMUS. [Suspect]
     Active Substance: TACROLIMUS
     Indication: PROPHYLAXIS AGAINST TRANSPLANT REJECTION
     Route: 065

REACTIONS (12)
  - Parvovirus B19 infection [Unknown]
  - Nephrotic syndrome [Unknown]
  - BK virus infection [Unknown]
  - Anaemia [Unknown]
  - Cytomegalovirus infection [Unknown]
  - Hepatitis B [Unknown]
  - Hepatitis C [Unknown]
  - Transplant rejection [Unknown]
  - White blood cell count increased [Unknown]
  - Platelet count increased [Unknown]
  - Tuberculosis [Unknown]
  - Blood creatinine increased [Unknown]
